FAERS Safety Report 8771661 (Version 2)
Quarter: 2012Q4

REPORT INFORMATION
  Report Type: 
  Country: IE (occurrence: IE)
  Receive Date: 20120906
  Receipt Date: 20121008
  Transmission Date: 20130627
  Serious: Yes (Hospitalization)
  Sender: FDA-Public Use
  Company Number: IE-NOVOPROD-358881

PATIENT
  Age: 52 Year
  Sex: Female

DRUGS (2)
  1. ACTIVELLE [Suspect]
     Indication: HORMONE REPLACEMENT THERAPY
     Dosage: once daily
     Route: 048
     Dates: start: 201202, end: 201205
  2. KLIOGEST [Suspect]
     Indication: HORMONE REPLACEMENT THERAPY
     Dosage: once daily
     Route: 048
     Dates: start: 200104, end: 201202

REACTIONS (1)
  - Pulmonary embolism [Unknown]
